FAERS Safety Report 15499624 (Version 3)
Quarter: 2018Q4

REPORT INFORMATION
  Report Type: Report from Study
  Country: FR (occurrence: FR)
  Receive Date: 20181015
  Receipt Date: 20181108
  Transmission Date: 20190205
  Serious: Yes (Other)
  Sender: FDA-Public Use
  Company Number: PHHY2018FR123768

PATIENT
  Age: 46 Year
  Sex: Female

DRUGS (3)
  1. SIGNIFOR LAR [Suspect]
     Active Substance: PASIREOTIDE
     Indication: ACROMEGALY
     Dosage: 40 MG,  28 DAYS
     Route: 065
     Dates: start: 20180319
  2. KARDEGIC [Concomitant]
     Active Substance: ASPIRIN DL-LYSINE
     Indication: ESSENTIAL THROMBOCYTHAEMIA
     Dosage: 75 MG, UNK
     Route: 048
     Dates: start: 20180404
  3. HYDREA [Concomitant]
     Active Substance: HYDROXYUREA
     Indication: ESSENTIAL THROMBOCYTHAEMIA
     Dosage: 500 MG, UNK
     Route: 048

REACTIONS (7)
  - Nausea [Not Recovered/Not Resolved]
  - Blood glucose increased [Unknown]
  - Anion gap decreased [Unknown]
  - Glycosylated haemoglobin increased [Unknown]
  - Diabetes mellitus [Recovering/Resolving]
  - Carbon dioxide increased [Unknown]
  - Blood osmolarity increased [Unknown]

NARRATIVE: CASE EVENT DATE: 20180319
